FAERS Safety Report 13472615 (Version 5)
Quarter: 2017Q3

REPORT INFORMATION
  Report Type: Report from Study
  Country: US (occurrence: US)
  Receive Date: 20170424
  Receipt Date: 20170706
  Transmission Date: 20171127
  Serious: Yes (Other)
  Sender: FDA-Public Use
  Company Number: US-MALLINCKRODT-T201700488

PATIENT
  Age: 52 Year
  Sex: Male

DRUGS (2)
  1. REPOSITORY CORTICOTROPIN INJECTION [Suspect]
     Active Substance: CORTICOTROPIN
     Indication: RHEUMATOID ARTHRITIS
     Dosage: 80 UNITS EVERY 4 DAYS
     Route: 058
     Dates: start: 20160310
  2. REPOSITORY CORTICOTROPIN INJECTION [Suspect]
     Active Substance: CORTICOTROPIN
     Dosage: 80 UNITS / 1 ML, 2 TIMES PER WEEK, TUESDAY AND FRIDAY
     Route: 058
     Dates: start: 20160310, end: 20170523

REACTIONS (16)
  - Intervertebral disc degeneration [Not Recovered/Not Resolved]
  - Oedema peripheral [Recovering/Resolving]
  - Irritability [Not Recovered/Not Resolved]
  - Insomnia [Recovering/Resolving]
  - Drug ineffective [Not Recovered/Not Resolved]
  - Gout [Not Recovered/Not Resolved]
  - Pain [Recovering/Resolving]
  - Laboratory test abnormal [Recovering/Resolving]
  - Sleep disorder [Recovering/Resolving]
  - Fatigue [Not Recovered/Not Resolved]
  - Rheumatoid arthritis [Not Recovered/Not Resolved]
  - Gait inability [Recovering/Resolving]
  - Drug dose omission [Not Recovered/Not Resolved]
  - Dyskinesia [Recovering/Resolving]
  - Peripheral swelling [Recovering/Resolving]
  - Drug effect decreased [Recovering/Resolving]

NARRATIVE: CASE EVENT DATE: 201703
